FAERS Safety Report 17768926 (Version 2)
Quarter: 2022Q1

REPORT INFORMATION
  Report Type: Report from Study
  Country: FR (occurrence: None)
  Receive Date: 20200512
  Receipt Date: 20220131
  Transmission Date: 20220423
  Serious: Yes (Death, Hospitalization, Other)
  Sender: FDA-Public Use
  Company Number: FR-ROCHE-2597344

PATIENT
  Age: 62 Year
  Sex: Male
  Weight: 70 kg

DRUGS (7)
  1. BEVACIZUMAB [Suspect]
     Active Substance: BEVACIZUMAB
     Indication: Neuroendocrine carcinoma
     Route: 042
     Dates: start: 20200309, end: 20200416
  2. IRINOTECAN [Concomitant]
     Active Substance: IRINOTECAN
     Indication: Neuroendocrine carcinoma
     Route: 042
     Dates: start: 20200309, end: 20200414
  3. FLUOROURACIL [Concomitant]
     Active Substance: FLUOROURACIL
     Indication: Neuroendocrine carcinoma
     Route: 042
     Dates: start: 20200309, end: 20200414
  4. LEUCOVORIN CALCIUM [Concomitant]
     Active Substance: LEUCOVORIN CALCIUM
     Indication: Neuroendocrine carcinoma
     Dosage: 200 MG/M2
     Route: 042
     Dates: start: 20200309, end: 20200414
  5. ONDANSETRON [Concomitant]
     Active Substance: ONDANSETRON
     Route: 042
     Dates: start: 20200309, end: 20200414
  6. METHYLPREDNISOLONE [Concomitant]
     Active Substance: METHYLPREDNISOLONE
     Route: 042
     Dates: start: 20200309, end: 20200414
  7. APREPITANT [Concomitant]
     Active Substance: APREPITANT
     Route: 048
     Dates: start: 20200309, end: 20200414

REACTIONS (15)
  - Asthenia [Not Recovered/Not Resolved]
  - Hypercalcaemia [Not Recovered/Not Resolved]
  - Leukopenia [Not Recovered/Not Resolved]
  - Weight decreased [Not Recovered/Not Resolved]
  - Decreased appetite [Not Recovered/Not Resolved]
  - Pancreatitis [Unknown]
  - General physical health deterioration [Fatal]
  - Pleural effusion [Unknown]
  - Pain [Unknown]
  - Nausea [Unknown]
  - Chills [Unknown]
  - Disorientation [Unknown]
  - Staphylococcus test positive [Unknown]
  - Hyperthermia [Unknown]
  - Confusional state [Unknown]

NARRATIVE: CASE EVENT DATE: 20200428
